FAERS Safety Report 5270107-8 (Version None)
Quarter: 2007Q1

REPORT INFORMATION
  Report Type: 
  Country: None (occurrence: None)
  Receive Date: 20070320
  Receipt Date: 20070307
  Transmission Date: 20070707
  Serious: Yes (Hospitalization)
  Sender: FDA-Public Use
  Company Number: FR-ELI_LILLY_AND_COMPANY-FR200703001322

PATIENT
  Age: 84 Year
  Sex: Female

DRUGS (8)
  1. PROZAC [Suspect]
     Dosage: 20 MG, DAILY (1/D)
     Route: 048
     Dates: end: 20061107
  2. BI-TILDIEM [Concomitant]
     Dosage: 120 MG, DAILY (1/D)
     Route: 048
     Dates: end: 20061107
  3. LASIX [Concomitant]
     Dosage: 1 D/F, DAILY (1/D)
     Route: 048
     Dates: end: 20061107
  4. SINEMET [Concomitant]
     Indication: PARKINSON'S DISEASE
     Dosage: 4 D/F, DAILY (1/D)
     Route: 048
     Dates: end: 20061107
  5. INIPOMP [Concomitant]
     Dosage: 40 MG, DAILY (1/D)
     Route: 048
     Dates: end: 20061107
  6. DIFFU K [Concomitant]
     Dosage: 3 D/F, DAILY (1/D)
     Route: 048
  7. DIGOXIN [Concomitant]
     Dosage: 1 D/F, DAILY (1/D)
     Route: 065
  8. PREVISCAN [Concomitant]
     Route: 065

REACTIONS (4)
  - ABNORMAL BEHAVIOUR [None]
  - FALL [None]
  - ORTHOSTATIC HYPOTENSION [None]
  - RESPIRATORY DEPRESSION [None]
